FAERS Safety Report 25125761 (Version 3)
Quarter: 2025Q2

REPORT INFORMATION
  Report Type: Spontaneous
  Country: FR (occurrence: FR)
  Receive Date: 20250326
  Receipt Date: 20250421
  Transmission Date: 20250717
  Serious: Yes (Hospitalization, Disabling, Other)
  Sender: ORGANON
  Company Number: None

PATIENT
  Age: 60 Year
  Sex: Female

DRUGS (127)
  1. MIRTAZAPINE [Suspect]
     Active Substance: MIRTAZAPINE
     Indication: Product used for unknown indication
     Route: 065
  2. MIRTAZAPINE [Suspect]
     Active Substance: MIRTAZAPINE
     Indication: Product used for unknown indication
     Dosage: ARROW GENERIQUES 15 MG FI/30, (2 TABLETS IN THE EVENING FOR 3 MONTHS)
     Route: 048
  3. MIRTAZAPINE [Suspect]
     Active Substance: MIRTAZAPINE
     Route: 048
  4. SMECTA [Suspect]
     Active Substance: MONTMORILLONITE
     Indication: Product used for unknown indication
     Dosage: (SMECTA 3 G POWDER FOR ORAL SUSP, IN ORANGE VANILLA SACHET) 3 SACHETS A DAY FOR 10 DAYS
     Route: 065
  5. PROGESTERONE [Suspect]
     Active Substance: PROGESTERONE
     Indication: Product used for unknown indication
     Dosage: 1 DOSE OF GEL PER DAY ON THE BREASTS RP 6 MONTHS
     Route: 065
  6. ACETAMINOPHEN [Suspect]
     Active Substance: ACETAMINOPHEN
     Indication: Product used for unknown indication
     Route: 065
  7. PREGABALIN [Suspect]
     Active Substance: PREGABALIN
     Indication: Product used for unknown indication
     Route: 048
  8. METEOSPASMYL (ALVERINE CITRATE\DIMETHICONE) [Suspect]
     Active Substance: ALVERINE CITRATE\DIMETHICONE
     Indication: Product used for unknown indication
     Dosage: 300 MG 3 CAPSULES A DAY FOR 10 DAYS
     Route: 065
  9. METEOSPASMYL (ALVERINE CITRATE\DIMETHICONE) [Suspect]
     Active Substance: ALVERINE CITRATE\DIMETHICONE
     Route: 065
  10. LOCOID [Suspect]
     Active Substance: HYDROCORTISONE BUTYRATE
     Indication: Product used for unknown indication
     Route: 065
  11. CETIRIZINE HYDROCHLORIDE [Suspect]
     Active Substance: CETIRIZINE HYDROCHLORIDE
     Indication: Product used for unknown indication
     Route: 065
  12. CHLORMADINONE [Suspect]
     Active Substance: CHLORMADINONE
     Indication: Product used for unknown indication
     Route: 065
  13. BROMAZEPAM [Suspect]
     Active Substance: BROMAZEPAM
     Indication: Product used for unknown indication
     Dosage: 6 MG (6 MG TABS DOUBLE-SCORED 1 TBLT/30) 1/4 TABLET MORNING, NOON AND EVENING, FOR 3 MONTHS.
     Route: 048
  14. BROMAZEPAM [Suspect]
     Active Substance: BROMAZEPAM
     Dosage: 6 MG (6 MG TABS DOUBLE-SCORED 1 TBLT/30) 1/4 TABLET MORNING, NOON AND EVENING, FOR 3 MONTHS.
     Route: 048
  15. BROMAZEPAM [Suspect]
     Active Substance: BROMAZEPAM
     Indication: Product used for unknown indication
     Dosage: 0.25 DF, TID
     Route: 048
  16. BROMAZEPAM [Suspect]
     Active Substance: BROMAZEPAM
  17. CETIRIZINE HYDROCHLORIDE [Suspect]
     Active Substance: CETIRIZINE HYDROCHLORIDE
     Dosage: 1 DF, QD/ONCE IN THE EVENING
  18. CETIRIZINE HYDROCHLORIDE [Suspect]
     Active Substance: CETIRIZINE HYDROCHLORIDE
     Route: 065
  19. DAFALGAN [Suspect]
     Active Substance: ACETAMINOPHEN
     Indication: Product used for unknown indication
     Dosage: 4 DF, QD
     Route: 048
  20. DAFALGAN [Suspect]
     Active Substance: ACETAMINOPHEN
     Dosage: 1 G TLB/8 (4 TABLETS A DAY FOR ONE MONTH, IF NECESSARY)
     Route: 048
  21. GLYCERIN\MINERAL OIL\PETROLATUM [Suspect]
     Active Substance: GLYCERIN\MINERAL OIL\PETROLATUM
     Indication: Product used for unknown indication
     Route: 003
  22. IBUPROFEN [Suspect]
     Active Substance: IBUPROFEN
     Indication: Product used for unknown indication
     Dosage: MAKE 3 APPLICATIONS PER DAY
  23. IBUPROFEN [Suspect]
     Active Substance: IBUPROFEN
     Dosage: 5 %, TID (IBUFETUM 5% GEL T/60G) (APPLY 3 TIMES A DAY, FOR 1 MONTH)
     Route: 003
  24. NOMEGESTROL ACETATE [Suspect]
     Active Substance: NOMEGESTROL ACETATE
     Indication: Ovarian cyst
     Dosage: 5 MILLIGRAM, QD
     Dates: start: 20100621
  25. NOMEGESTROL ACETATE [Suspect]
     Active Substance: NOMEGESTROL ACETATE
     Indication: Menstruation irregular
     Dosage: 5 MILLIGRAM, QD
     Dates: start: 20150403
  26. NOMEGESTROL ACETATE [Suspect]
     Active Substance: NOMEGESTROL ACETATE
     Indication: Product used for unknown indication
     Dosage: 5 MILLIGRAM, QD
     Dates: start: 20170921
  27. NOMEGESTROL ACETATE [Suspect]
     Active Substance: NOMEGESTROL ACETATE
     Dosage: 5 MILLIGRAM, QD
     Dates: start: 20140505
  28. NOMEGESTROL ACETATE [Suspect]
     Active Substance: NOMEGESTROL ACETATE
     Dosage: 5 MILLIGRAM, QD
     Dates: start: 20181106, end: 20190117
  29. NOMEGESTROL ACETATE [Suspect]
     Active Substance: NOMEGESTROL ACETATE
     Dosage: 5 MILLIGRAM, QD
     Dates: start: 20170613
  30. NOMEGESTROL ACETATE [Suspect]
     Active Substance: NOMEGESTROL ACETATE
     Dosage: 5 MILLIGRAM, QD
     Dates: start: 20180329
  31. NOMEGESTROL ACETATE [Suspect]
     Active Substance: NOMEGESTROL ACETATE
     Dosage: 5 MILLIGRAM, QD
     Dates: start: 20130517
  32. NOMEGESTROL ACETATE [Suspect]
     Active Substance: NOMEGESTROL ACETATE
     Dosage: 5 MILLIGRAM, QD
     Dates: start: 20170307
  33. NOMEGESTROL ACETATE [Suspect]
     Active Substance: NOMEGESTROL ACETATE
     Dosage: 5 MILLIGRAM, QD
     Dates: start: 20171211
  34. NOMEGESTROL ACETATE [Suspect]
     Active Substance: NOMEGESTROL ACETATE
     Dosage: 5 MILLIGRAM, QD
     Dates: start: 20120514
  35. NOMEGESTROL ACETATE [Suspect]
     Active Substance: NOMEGESTROL ACETATE
     Dosage: 5 MILLIGRAM, QD
     Dates: start: 20170918
  36. NOMEGESTROL ACETATE [Suspect]
     Active Substance: NOMEGESTROL ACETATE
     Dates: start: 20170918
  37. NOMEGESTROL ACETATE [Suspect]
     Active Substance: NOMEGESTROL ACETATE
     Dosage: 5 MG, QD 1 TABLET IN THE EVENING FOR 3 MONTHS
     Dates: start: 20170918
  38. CHLORMADINONE ACETATE [Suspect]
     Active Substance: CHLORMADINONE ACETATE
     Indication: Menstruation irregular
     Dosage: ONE TABLET PER DAY DURING 21 DAYS AND 7 DAYS OFF BY MONTHS
     Route: 065
  39. CHLORMADINONE ACETATE [Suspect]
     Active Substance: CHLORMADINONE ACETATE
     Indication: Ovarian cyst
     Dosage: 1 DF , QD FOR 21 DAYS/MERCK , ONE TABLET PER DAY DURING 21 DAYS AND 7 DAYS OFF BY MONTHS
     Route: 065
     Dates: start: 20190806
  40. CHLORMADINONE ACETATE [Suspect]
     Active Substance: CHLORMADINONE ACETATE
     Indication: Menstruation irregular
     Dosage: 1 DF , QD FOR 21 DAYS
     Route: 065
     Dates: start: 20190715
  41. CHLORMADINONE ACETATE [Suspect]
     Active Substance: CHLORMADINONE ACETATE
     Dosage: 1 DF , QD FOR 21 DAYS
     Route: 065
     Dates: start: 20190117
  42. CHLORMADINONE ACETATE [Suspect]
     Active Substance: CHLORMADINONE ACETATE
     Dosage: 1 DF , QD FOR 21 DAYS/ONE TABLET PER DAY DURING 21 DAYS AND 7 DAYS OFF BY MONTHS
     Route: 065
     Dates: start: 20100317, end: 20100621
  43. LYRICA [Suspect]
     Active Substance: PREGABALIN
     Dosage: 1 DF, BID
     Route: 048
  44. MIRTAZAPINE [Suspect]
     Active Substance: MIRTAZAPINE
     Dosage: ARROW GENERIQUES 15 MG FI/30, (2 TABLETS IN THE EVENING FOR 3 MONTHS)
     Route: 048
  45. TRAMADOL HYDROCHLORIDE [Suspect]
     Active Substance: TRAMADOL HYDROCHLORIDE
     Indication: Complex regional pain syndrome
     Dosage: 1 DF, QD
     Route: 048
  46. TRAMADOL HYDROCHLORIDE [Suspect]
     Active Substance: TRAMADOL HYDROCHLORIDE
     Indication: Product used for unknown indication
     Dosage: 150 MG, QD (150 MG CAPSULE LP ONCE-DAILY 5) TAKE 1 CAPSULE IN THE EVENING FOR 3 MONTHS)
     Route: 048
  47. PREGABALIN [Suspect]
     Active Substance: PREGABALIN
     Dosage: 1 DF, BID
  48. TIAPRIDE HYDROCHLORIDE [Suspect]
     Active Substance: TIAPRIDE HYDROCHLORIDE
     Indication: Product used for unknown indication
     Dosage: 1 DF, QD/ONCE IN THE EVENING
     Route: 048
  49. TIAPRIDE HYDROCHLORIDE [Suspect]
     Active Substance: TIAPRIDE HYDROCHLORIDE
     Dosage: 100 MG (100 SCORED TABLET PLQ/20) 1 TABLET THE EVENING FOR 3 MONTHS
     Route: 048
  50. NOMEGESTROL ACETATE [Suspect]
     Active Substance: NOMEGESTROL ACETATE
     Indication: Product used for unknown indication
     Dosage: UNK, QD (CONTINUOUSLY)
     Route: 065
  51. NOMEGESTROL ACETATE [Suspect]
     Active Substance: NOMEGESTROL ACETATE
     Route: 065
  52. TIAPRIDE HYDROCHLORIDE [Suspect]
     Active Substance: TIAPRIDE HYDROCHLORIDE
     Indication: Product used for unknown indication
  53. ACETAMINOPHEN [Suspect]
     Active Substance: ACETAMINOPHEN
     Indication: Product used for unknown indication
     Dosage: 4 G, QD, 1 G TLB/8 (4 TABLETS A DAY FOR ONE MONTH, IF NECESSARY)
     Route: 048
  54. HYDROCORTISONE BUTYRATE [Suspect]
     Active Substance: HYDROCORTISONE BUTYRATE
     Indication: Product used for unknown indication
     Route: 065
  55. TIAPRIDE HYDROCHLORIDE [Suspect]
     Active Substance: TIAPRIDE HYDROCHLORIDE
     Indication: Product used for unknown indication
     Route: 065
  56. TRAMADOL HYDROCHLORIDE [Suspect]
     Active Substance: TRAMADOL HYDROCHLORIDE
     Indication: Product used for unknown indication
     Dosage: 150 MG, QD (150 MG CAPSULE LP ONCE-DAILY 5) TAKE 1 CAPSULE IN THE EVENING FOR 3 MONTHS)
  57. PROGESTERONE [Suspect]
     Active Substance: PROGESTERONE
     Indication: Product used for unknown indication
     Route: 065
  58. NOMEGESTROL ACETATE [Suspect]
     Active Substance: NOMEGESTROL ACETATE
     Indication: Product used for unknown indication
     Route: 065
     Dates: start: 20200621
  59. NOMEGESTROL ACETATE [Suspect]
     Active Substance: NOMEGESTROL ACETATE
     Route: 065
     Dates: start: 20120515
  60. NOMEGESTROL ACETATE [Suspect]
     Active Substance: NOMEGESTROL ACETATE
     Route: 065
     Dates: start: 20140505
  61. NOMEGESTROL ACETATE [Suspect]
     Active Substance: NOMEGESTROL ACETATE
     Route: 065
     Dates: start: 20170307
  62. NOMEGESTROL ACETATE [Suspect]
     Active Substance: NOMEGESTROL ACETATE
     Route: 065
     Dates: start: 20170613
  63. NOMEGESTROL ACETATE [Suspect]
     Active Substance: NOMEGESTROL ACETATE
     Route: 065
     Dates: start: 20170918
  64. NOMEGESTROL ACETATE [Suspect]
     Active Substance: NOMEGESTROL ACETATE
     Route: 065
     Dates: start: 20171211
  65. NOMEGESTROL ACETATE [Suspect]
     Active Substance: NOMEGESTROL ACETATE
     Route: 065
     Dates: start: 20180329
  66. NOMEGESTROL ACETATE [Suspect]
     Active Substance: NOMEGESTROL ACETATE
     Route: 065
  67. NOMEGESTROL ACETATE [Suspect]
     Active Substance: NOMEGESTROL ACETATE
     Dosage: 5 MG, QD 1 TABLET IN THE EVENING FOR 3 MONTHS
     Route: 065
  68. NOMEGESTROL ACETATE [Suspect]
     Active Substance: NOMEGESTROL ACETATE
  69. PREGABALIN [Suspect]
     Active Substance: PREGABALIN
     Indication: Product used for unknown indication
     Dosage: UNK, BID (100 MG CAPSULE TBLT/84 (TAKE 1 CAPSULE MORNING AND EVENING, FOR 3 MONTHS)
     Route: 048
  70. PREGABALIN [Suspect]
     Active Substance: PREGABALIN
     Indication: Product used for unknown indication
     Route: 048
  71. PREGABALIN [Suspect]
     Active Substance: PREGABALIN
     Dosage: UNK, BID (100 MG CAPSULE TBLT/84 (TAKE 1 CAPSULE MORNING AND EVENING, FOR 3 MONTHS)
     Route: 048
  72. PREGABALIN [Suspect]
     Active Substance: PREGABALIN
     Route: 048
  73. CHLORMADINONE [Suspect]
     Active Substance: CHLORMADINONE
     Indication: Product used for unknown indication
     Route: 065
  74. CHLORMADINONE [Suspect]
     Active Substance: CHLORMADINONE
     Indication: Product used for unknown indication
     Route: 065
  75. CHLORMADINONE [Suspect]
     Active Substance: CHLORMADINONE
     Indication: Product used for unknown indication
     Route: 065
  76. NOMEGESTROL [Suspect]
     Active Substance: NOMEGESTROL
     Indication: Product used for unknown indication
     Route: 065
  77. NOMEGESTROL [Suspect]
     Active Substance: NOMEGESTROL
     Indication: Product used for unknown indication
     Route: 065
  78. NOMEGESTROL [Suspect]
     Active Substance: NOMEGESTROL
     Route: 065
  79. NOMEGESTROL [Suspect]
     Active Substance: NOMEGESTROL
     Route: 065
  80. NOMEGESTROL [Suspect]
     Active Substance: NOMEGESTROL
     Route: 065
  81. NOMEGESTROL [Suspect]
     Active Substance: NOMEGESTROL
     Route: 065
  82. NOMEGESTROL [Suspect]
     Active Substance: NOMEGESTROL
     Route: 065
  83. NOMEGESTROL [Suspect]
     Active Substance: NOMEGESTROL
     Route: 065
  84. NOMEGESTROL [Suspect]
     Active Substance: NOMEGESTROL
     Route: 065
  85. NOMEGESTROL [Suspect]
     Active Substance: NOMEGESTROL
     Route: 065
  86. NOMEGESTROL [Suspect]
     Active Substance: NOMEGESTROL
     Route: 065
  87. NOMEGESTROL [Suspect]
     Active Substance: NOMEGESTROL
     Route: 065
  88. NOMEGESTROL [Suspect]
     Active Substance: NOMEGESTROL
     Route: 065
  89. NOMEGESTROL [Suspect]
     Active Substance: NOMEGESTROL
     Route: 065
  90. NOMEGESTROL [Suspect]
     Active Substance: NOMEGESTROL
     Route: 065
  91. NOMEGESTROL [Suspect]
     Active Substance: NOMEGESTROL
     Route: 065
  92. NOMEGESTROL [Suspect]
     Active Substance: NOMEGESTROL
     Route: 065
  93. NOMEGESTROL [Suspect]
     Active Substance: NOMEGESTROL
     Route: 065
  94. NOMEGESTROL [Suspect]
     Active Substance: NOMEGESTROL
     Route: 065
  95. NOMEGESTROL [Suspect]
     Active Substance: NOMEGESTROL
     Route: 065
  96. NOMEGESTROL [Suspect]
     Active Substance: NOMEGESTROL
     Route: 065
  97. NOMEGESTROL [Suspect]
     Active Substance: NOMEGESTROL
     Route: 065
  98. NOMEGESTROL [Suspect]
     Active Substance: NOMEGESTROL
     Route: 065
  99. NOMEGESTROL [Suspect]
     Active Substance: NOMEGESTROL
     Route: 065
  100. NOMEGESTROL [Suspect]
     Active Substance: NOMEGESTROL
     Route: 065
  101. NOMEGESTROL [Suspect]
     Active Substance: NOMEGESTROL
     Route: 065
  102. NOMEGESTROL [Suspect]
     Active Substance: NOMEGESTROL
     Route: 065
  103. NOMEGESTROL [Suspect]
     Active Substance: NOMEGESTROL
     Route: 065
  104. NOMEGESTROL [Suspect]
     Active Substance: NOMEGESTROL
     Route: 065
  105. NOMEGESTROL [Suspect]
     Active Substance: NOMEGESTROL
     Route: 065
  106. NOMEGESTROL [Suspect]
     Active Substance: NOMEGESTROL
     Route: 065
  107. NOMEGESTROL [Suspect]
     Active Substance: NOMEGESTROL
     Route: 065
  108. NOMEGESTROL [Suspect]
     Active Substance: NOMEGESTROL
     Route: 065
  109. NOMEGESTROL [Suspect]
     Active Substance: NOMEGESTROL
     Route: 065
  110. NOMEGESTROL [Suspect]
     Active Substance: NOMEGESTROL
     Route: 065
  111. NOMEGESTROL [Suspect]
     Active Substance: NOMEGESTROL
     Route: 065
  112. NOMEGESTROL [Suspect]
     Active Substance: NOMEGESTROL
     Route: 065
  113. NOMEGESTROL [Suspect]
     Active Substance: NOMEGESTROL
     Route: 065
  114. NOMEGESTROL [Suspect]
     Active Substance: NOMEGESTROL
     Route: 065
  115. NOMEGESTROL [Suspect]
     Active Substance: NOMEGESTROL
     Route: 065
  116. NOMEGESTROL [Suspect]
     Active Substance: NOMEGESTROL
     Route: 065
  117. NOMEGESTROL [Suspect]
     Active Substance: NOMEGESTROL
     Route: 065
  118. NOMEGESTROL [Suspect]
     Active Substance: NOMEGESTROL
     Route: 065
  119. NOMEGESTROL [Suspect]
     Active Substance: NOMEGESTROL
     Route: 065
  120. NOMEGESTROL [Suspect]
     Active Substance: NOMEGESTROL
     Route: 065
  121. NOMEGESTROL [Suspect]
     Active Substance: NOMEGESTROL
     Route: 065
  122. NOMEGESTROL [Suspect]
     Active Substance: NOMEGESTROL
     Route: 065
  123. NOMEGESTROL [Suspect]
     Active Substance: NOMEGESTROL
     Route: 065
  124. NOMEGESTROL [Suspect]
     Active Substance: NOMEGESTROL
     Route: 065
  125. NOMEGESTROL [Suspect]
     Active Substance: NOMEGESTROL
     Route: 065
  126. NOMEGESTROL [Suspect]
     Active Substance: NOMEGESTROL
     Route: 065
  127. NOMEGESTROL [Suspect]
     Active Substance: NOMEGESTROL
     Indication: Product used for unknown indication
     Route: 065

REACTIONS (7)
  - Meningioma [Unknown]
  - Muscular weakness [Not Recovered/Not Resolved]
  - Pain in extremity [Not Recovered/Not Resolved]
  - Dizziness [Not Recovered/Not Resolved]
  - Epistaxis [Not Recovered/Not Resolved]
  - Headache [Not Recovered/Not Resolved]
  - Asthenia [Not Recovered/Not Resolved]

NARRATIVE: CASE EVENT DATE: 20211021
